FAERS Safety Report 19626048 (Version 1)
Quarter: 2021Q3

REPORT INFORMATION
  Report Type: Spontaneous
  Country: SK (occurrence: SK)
  Receive Date: 20210728
  Receipt Date: 20210728
  Transmission Date: 20211014
  Serious: Yes (Life-Threatening, Hospitalization)
  Sender: FDA-Public Use
  Company Number: None

PATIENT
  Age: 31 Year
  Sex: Female
  Weight: 55 kg

DRUGS (4)
  1. POTASSIUM [Concomitant]
     Active Substance: POTASSIUM
  2. DESLORATADINE. [Concomitant]
     Active Substance: DESLORATADINE
  3. BOCOUTURE [Suspect]
     Active Substance: BOTULINUM TOXIN TYPE A
     Dates: start: 20210524, end: 20210524
  4. AZELASTINE EYE SOLUTION [Concomitant]

REACTIONS (5)
  - Peripheral swelling [None]
  - Generalised oedema [None]
  - Eye swelling [None]
  - Dyspnoea [None]
  - Dry mouth [None]

NARRATIVE: CASE EVENT DATE: 20210619
